FAERS Safety Report 5604377-0 (Version None)
Quarter: 2008Q1

REPORT INFORMATION
  Report Type: 
  Country: None (occurrence: None)
  Receive Date: 20080123
  Receipt Date: 20080123
  Transmission Date: 20080703
  Serious: No
  Sender: FDA-Public Use
  Company Number: None

PATIENT
  Age: 35 Year
  Sex: Female
  Weight: 42.1845 kg

DRUGS (1)
  1. KENALOG [Suspect]
     Indication: DERMATITIS CONTACT
     Dosage: (DURATION: ONE TIME)

REACTIONS (8)
  - DANDRUFF [None]
  - DRY SKIN [None]
  - GAIT DISTURBANCE [None]
  - INJECTION SITE REACTION [None]
  - MYALGIA [None]
  - PAIN [None]
  - PRURITUS [None]
  - SKIN EXFOLIATION [None]
